FAERS Safety Report 14293060 (Version 1)
Quarter: 2017Q4

REPORT INFORMATION
  Report Type: Spontaneous
  Country: US (occurrence: US)
  Receive Date: 20171215
  Receipt Date: 20171215
  Transmission Date: 20180321
  Serious: Yes (Hospitalization, Disabling)
  Sender: FDA-Public Use
  Company Number: US-FRESENIUS KABI-FK201710981

PATIENT
  Age: 60 Year
  Sex: Female

DRUGS (8)
  1. ALPRAZOLAM. [Concomitant]
     Active Substance: ALPRAZOLAM
     Indication: STRESS
  2. LYRICA [Concomitant]
     Active Substance: PREGABALIN
     Indication: NEURALGIA
     Route: 065
     Dates: start: 201709
  3. NICOTINE. [Concomitant]
     Active Substance: NICOTINE
     Indication: PRODUCT USED FOR UNKNOWN INDICATION
     Route: 065
     Dates: start: 201711
  4. OXYCODO/APAP [Concomitant]
     Indication: ARTHRALGIA
     Route: 065
     Dates: start: 200409
  5. PROGESTERONE INJECTION USP [Suspect]
     Active Substance: PROGESTERONE
     Indication: HORMONE REPLACEMENT THERAPY
     Route: 065
     Dates: start: 20170820
  6. OXYCODO/APAP [Concomitant]
     Indication: BACK PAIN
  7. BIEST CREAM [Concomitant]
     Active Substance: ESTRADIOL\ESTRIOL
     Indication: HORMONE THERAPY
     Route: 065
     Dates: start: 201709
  8. ALPRAZOLAM. [Concomitant]
     Active Substance: ALPRAZOLAM
     Indication: ANXIETY
     Route: 065
     Dates: start: 199207

REACTIONS (3)
  - Product use in unapproved indication [Unknown]
  - Pneumonia [Recovered/Resolved]
  - Deafness unilateral [Not Recovered/Not Resolved]

NARRATIVE: CASE EVENT DATE: 20170820
